FAERS Safety Report 9335882 (Version 1)
Quarter: 2013Q2

REPORT INFORMATION
  Report Type: Spontaneous
  Country: US (occurrence: US)
  Receive Date: 20130606
  Receipt Date: 20130606
  Transmission Date: 20140414
  Serious: No
  Sender: FDA-Public Use
  Company Number: US-AMGEN-USASP2013018904

PATIENT
  Age: 53 Year
  Sex: Female

DRUGS (14)
  1. PROLIA [Suspect]
     Indication: OSTEOPOROSIS
  2. PHENTERMINE [Concomitant]
     Dosage: 37.5 MG, UNK
     Dates: start: 2012
  3. ADVAIR [Concomitant]
     Dosage: 40 MG, QD
  4. POTASSIUM GLUCONATE [Concomitant]
     Indication: RESTLESS LEGS SYNDROME
     Dosage: 99 MG, UNK
     Dates: start: 201303
  5. MAGNESIUM [Concomitant]
     Indication: RESTLESS LEGS SYNDROME
     Dosage: 250 MG, UNK
     Dates: start: 201303
  6. SINGULAIR [Concomitant]
     Dosage: 10 MG, QD
  7. VIIBRYD [Concomitant]
     Dosage: 40 MG, QD
  8. FIORINAL                           /00090401/ [Concomitant]
     Indication: MIGRAINE
     Dosage: UNK UNK, AS NECESSARY
  9. BACLOFEN [Concomitant]
     Indication: CLUSTER HEADACHE
     Dosage: 10 MG, AS NECESSARY
  10. ONDANSETRON [Concomitant]
     Indication: NAUSEA
     Dosage: UNK UNK, AS NECESSARY
  11. VITAMIN B COMPLEX [Concomitant]
     Dosage: UNK UNK, QD
  12. VITAMIN D                          /00107901/ [Concomitant]
     Dosage: 2000 IU, QD
  13. ATIVAN [Concomitant]
     Dosage: 0.5 MG, UNK
  14. PROVENTIL                          /00139501/ [Concomitant]
     Indication: ASTHMA
     Dosage: UNK UNK, AS NECESSARY

REACTIONS (3)
  - Tooth disorder [Unknown]
  - Tooth fracture [Unknown]
  - Asthma [Unknown]
